FAERS Safety Report 9343662 (Version 2)
Quarter: 2013Q2

REPORT INFORMATION
  Report Type: Spontaneous
  Country: SK (occurrence: None)
  Receive Date: 20130610
  Receipt Date: 20130613
  Transmission Date: 20140414
  Serious: Yes (Hospitalization, Other)
  Sender: FDA-Public Use
  Company Number: SK-011895

PATIENT
  Age: 12 Year
  Sex: Male

DRUGS (4)
  1. ZOMACTON [Suspect]
     Indication: DWARFISM
     Route: 058
     Dates: start: 20121207, end: 20130304
  2. STRATTERA [Concomitant]
  3. ISOPRINOSINE [Concomitant]
  4. VITACALCIN [Concomitant]

REACTIONS (3)
  - Petechiae [None]
  - Haematoma [None]
  - Platelet count decreased [None]
